FAERS Safety Report 4696951-3 (Version None)
Quarter: 2005Q2

REPORT INFORMATION
  Report Type: 
  Country: None (occurrence: None)
  Receive Date: 20050620
  Receipt Date: 20050427
  Transmission Date: 20051028
  Serious: No
  Sender: FDA-Public Use
  Company Number: US-YAMANOUCHI-YPA20050222

PATIENT
  Age: 79 Year
  Sex: Female
  Weight: 79.3795 kg

DRUGS (13)
  1. VESICARE [Suspect]
     Indication: URINARY TRACT DISORDER
     Dosage: 5 MG QD PO
     Route: 048
     Dates: start: 20050301, end: 20050421
  2. TOPROL-XL [Concomitant]
  3. AVAPRO [Concomitant]
  4. SPIRONOLACTONE W/ HYDROCHLOROTHIAZIDE [Concomitant]
  5. ZOCOR [Concomitant]
  6. PRANDIN ^KUHN^ [Concomitant]
  7. COUMADIN [Concomitant]
  8. BETIMOL [Concomitant]
  9. OCUVITE [Concomitant]
  10. CALTRATE [Concomitant]
  11. OSTEO BI-FLEX [Concomitant]
  12. VITAMIN B COMPLEX CAP [Concomitant]
  13. PHENOBARBITAL TAB [Concomitant]

REACTIONS (1)
  - ABDOMINAL PAIN UPPER [None]
